FAERS Safety Report 20127294 (Version 3)
Quarter: 2022Q1

REPORT INFORMATION
  Report Type: Spontaneous
  Country: BR (occurrence: BR)
  Receive Date: 20211129
  Receipt Date: 20220117
  Transmission Date: 20220423
  Serious: Yes (Death, Hospitalization, Other)
  Sender: FDA-Public Use
  Company Number: BR-ELI_LILLY_AND_COMPANY-BR202111009458

PATIENT
  Age: 88 Year
  Sex: Female
  Weight: 45.7 kg

DRUGS (11)
  1. FORTEO [Suspect]
     Active Substance: TERIPARATIDE
     Indication: Osteoporosis
     Dosage: 20 UG, DAILY
     Route: 065
  2. PANTOPRAZOLE [Concomitant]
     Active Substance: PANTOPRAZOLE
     Dosage: UNK, UNKNOWN
     Route: 065
  3. FLORINEFE [Concomitant]
     Dosage: UNK, UNKNOWN
     Route: 065
  4. DONEPEZIL [Concomitant]
     Active Substance: DONEPEZIL
     Dosage: UNK, UNKNOWN
     Route: 065
  5. CITALOPRAM [Concomitant]
     Active Substance: CITALOPRAM HYDROBROMIDE
     Dosage: UNK, UNKNOWN
     Route: 065
  6. CHOLECALCIFEROL [Concomitant]
     Active Substance: CHOLECALCIFEROL
     Dosage: UNK, UNKNOWN
     Route: 065
  7. OSSOTRAT-D [Concomitant]
     Dosage: UNK, UNKNOWN
     Route: 065
  8. MEMANTINA [MEMANTINE HYDROCHLORIDE] [Concomitant]
     Dosage: UNK, UNKNOWN
     Route: 065
  9. QUETIAPINE FUMARATE [Concomitant]
     Active Substance: QUETIAPINE FUMARATE
     Dosage: UNK, UNKNOWN
     Route: 065
  10. CITONEURIN [CYANOCOBALAMIN;PYRIDOXINE HYDROCH [Concomitant]
     Dosage: UNK, UNKNOWN
     Route: 065
  11. OLANZAPINE [Concomitant]
     Active Substance: OLANZAPINE
     Dosage: UNK, UNKNOWN
     Route: 065

REACTIONS (5)
  - Acute respiratory failure [Fatal]
  - Aspiration [Fatal]
  - Pulmonary embolism [Fatal]
  - Femur fracture [Unknown]
  - Fall [Unknown]

NARRATIVE: CASE EVENT DATE: 20211101
